FAERS Safety Report 8559195-0 (Version None)
Quarter: 2012Q3

REPORT INFORMATION
  Report Type: 
  Country: None (occurrence: None)
  Receive Date: 20120720
  Receipt Date: 20120707
  Transmission Date: 20120928
  Serious: Yes (Other)
  Sender: FDA-Public Use
  Company Number: 2012SA048979

PATIENT
  Sex: Male

DRUGS (1)
  1. ICY HOT NO MESS / UNKNOWN / UNKNOWN [Suspect]
     Indication: MUSCULOSKELETAL PAIN

REACTIONS (4)
  - BURNS SECOND DEGREE [None]
  - APPLICATION SITE PAIN [None]
  - DISCOMFORT [None]
  - IMPAIRED WORK ABILITY [None]
